FAERS Safety Report 11420225 (Version 1)
Quarter: 2015Q3

REPORT INFORMATION
  Report Type: Spontaneous
  Country: US (occurrence: US)
  Receive Date: 20150826
  Receipt Date: 20150826
  Transmission Date: 20151125
  Serious: No
  Sender: FDA-Public Use
  Company Number: US-BRISTOL-MYERS SQUIBB COMPANY-BMS-2015-055022

PATIENT
  Sex: Male
  Weight: 136 kg

DRUGS (3)
  1. BENADRYL [Concomitant]
     Active Substance: DIPHENHYDRAMINE HYDROCHLORIDE
     Indication: PRODUCT USED FOR UNKNOWN INDICATION
     Route: 065
  2. ARIPIPRAZOLE. [Suspect]
     Active Substance: ARIPIPRAZOLE
     Indication: SCHIZOPHRENIA, CATATONIC TYPE
     Route: 065
  3. ABILIFY [Suspect]
     Active Substance: ARIPIPRAZOLE
     Indication: SCHIZOPHRENIA, CATATONIC TYPE
     Dosage: 30 MG, QD
     Route: 048

REACTIONS (5)
  - Productive cough [Recovering/Resolving]
  - Choking sensation [Recovering/Resolving]
  - Insomnia [Recovering/Resolving]
  - Sleep disorder [Recovering/Resolving]
  - Retching [Recovering/Resolving]
